FAERS Safety Report 15205911 (Version 2)
Quarter: 2018Q3

REPORT INFORMATION
  Report Type: Spontaneous
  Country: DE (occurrence: DE)
  Receive Date: 20180727
  Receipt Date: 20180816
  Transmission Date: 20181010
  Serious: Yes (Hospitalization, Other)
  Sender: FDA-Public Use
  Company Number: DE-AMGEN-DEUSP2018101131

PATIENT
  Age: 63 Year
  Sex: Female
  Weight: 97 kg

DRUGS (3)
  1. HERCEPTIN [Concomitant]
     Active Substance: TRASTUZUMAB
     Dosage: UNK UNK, Q3WK
     Dates: start: 20110430, end: 20161014
  2. KADCYLA [Concomitant]
     Active Substance: ADO-TRASTUZUMAB EMTANSINE
     Indication: BREAST CANCER METASTATIC
     Dosage: 350 MG, Q3WK
     Dates: start: 20170120
  3. XGEVA [Suspect]
     Active Substance: DENOSUMAB
     Indication: BREAST CANCER METASTATIC
     Dosage: 120 MG, Q4WK
     Route: 058
     Dates: start: 20140912, end: 20180319

REACTIONS (4)
  - Metastases to lymph nodes [Unknown]
  - Tooth extraction [Unknown]
  - Osteonecrosis of jaw [Recovering/Resolving]
  - Metastases to bone [Unknown]

NARRATIVE: CASE EVENT DATE: 20161111
